FAERS Safety Report 9869397 (Version 1)
Quarter: 2014Q1

REPORT INFORMATION
  Report Type: Spontaneous
  Country: US (occurrence: US)
  Receive Date: 20140205
  Receipt Date: 20140205
  Transmission Date: 20141002
  Serious: Yes (Hospitalization)
  Sender: FDA-Public Use
  Company Number: US-BAYER-2014-017351

PATIENT
  Age: 24 Year
  Sex: Female
  Weight: 104.76 kg

DRUGS (15)
  1. YASMIN [Suspect]
  2. DEMEROL [Concomitant]
  3. OXYCODONE [Concomitant]
  4. VALIUM [Concomitant]
  5. PROTONIX [Concomitant]
     Indication: GASTROOESOPHAGEAL REFLUX DISEASE
  6. ZANAFLEX [Concomitant]
     Indication: MUSCLE SPASMS
  7. LEXAPRO [Concomitant]
     Indication: DEPRESSION
     Dosage: 20 MG, UNK
  8. LEXAPRO [Concomitant]
     Indication: ANXIETY
  9. GLUCOPHAGE [Concomitant]
     Indication: POLYCYSTIC OVARIES
     Dosage: 500 MG, UNK
  10. CELEBREX [Concomitant]
     Indication: ANTIINFLAMMATORY THERAPY
     Dosage: 200 MG, UNK
  11. LORAZEPAM [Concomitant]
     Indication: ANXIETY
     Dosage: 1-2 MG
  12. LOVENOX [Concomitant]
     Indication: PULMONARY EMBOLISM
  13. LOVENOX [Concomitant]
     Indication: THROMBOPHLEBITIS SUPERFICIAL
  14. COUMADIN [Concomitant]
     Indication: PULMONARY EMBOLISM
  15. COUMADIN [Concomitant]
     Indication: THROMBOPHLEBITIS SUPERFICIAL

REACTIONS (2)
  - Thrombophlebitis superficial [None]
  - Pulmonary embolism [Recovering/Resolving]
